FAERS Safety Report 9206600 (Version 1)
Quarter: 2013Q2

REPORT INFORMATION
  Report Type: Spontaneous
  Country: US (occurrence: US)
  Receive Date: 20130403
  Receipt Date: 20130403
  Transmission Date: 20140414
  Serious: Yes (Other)
  Sender: FDA-Public Use
  Company Number: PHHY2013US017519

PATIENT
  Age: 64 Year
  Sex: Female
  Weight: 45 kg

DRUGS (3)
  1. ZADITOR [Suspect]
     Indication: EYE PRURITUS
     Dosage: 1 DRP/EYE
     Route: 047
     Dates: start: 20130220, end: 20130220
  2. SYNTHROID [Concomitant]
     Indication: THYROID DISORDER
  3. LIPITOR [Concomitant]
     Indication: BLOOD CHOLESTEROL ABNORMAL

REACTIONS (6)
  - Corneal oedema [Recovered/Resolved]
  - Conjunctival oedema [Recovered/Resolved]
  - Eye pain [Recovered/Resolved]
  - Eye irritation [Recovered/Resolved]
  - Eye swelling [Recovered/Resolved]
  - Ocular hyperaemia [Recovered/Resolved]
